FAERS Safety Report 5654587-1 (Version None)
Quarter: 2008Q1

REPORT INFORMATION
  Report Type: 
  Country: None (occurrence: None)
  Receive Date: 20080307
  Receipt Date: 20080229
  Transmission Date: 20080703
  Serious: Yes (Death, Life-Threatening, Hospitalization, Other)
  Sender: FDA-Public Use
  Company Number: ZA-NOVOPROD-266226

PATIENT
  Sex: Male
  Weight: 70 kg

DRUGS (15)
  1. NOVOSEVEN [Suspect]
     Indication: TRAUMATIC HAEMORRHAGE
     Dosage: 3 DOSES
     Route: 042
     Dates: start: 20070801, end: 20070802
  2. SOLU-CORTEF [Concomitant]
     Indication: RESPIRATORY THERAPY
     Dosage: 100 MG, UNK
     Route: 042
     Dates: start: 20070802
  3. MORPHINE [Concomitant]
     Indication: PAIN MANAGEMENT
     Dosage: 1-6 MG
     Route: 042
     Dates: start: 20070802
  4. DORMICUM                           /00036201/ [Concomitant]
     Indication: SEDATION
     Dosage: 1-6 MG
     Route: 042
     Dates: start: 20070802
  5. CIMETIDINE [Concomitant]
     Indication: PROPHYLAXIS
     Dosage: 200 MG, UNK
     Route: 042
     Dates: start: 20070802
  6. ADRENALINE                         /00003901/ [Concomitant]
     Dosage: .1 UG/KG, UNK
     Route: 042
     Dates: start: 20070802
  7. ADRENALINE                         /00003901/ [Concomitant]
     Dosage: .22 UG/KG, UNK
     Route: 042
     Dates: start: 20070802
  8. ADRENALINE                         /00003901/ [Concomitant]
     Dosage: .09 UG/KG, UNK
     Dates: start: 20070802
  9. AUGMENTIN '125' [Concomitant]
     Indication: PROPHYLAXIS
     Dosage: 1.2 G, QD
     Route: 042
     Dates: start: 20070802, end: 20070803
  10. PERFALGAN [Concomitant]
     Indication: PYREXIA
     Dosage: 1 G, QD
     Route: 042
     Dates: start: 20070802, end: 20070804
  11. DOBUTREX [Concomitant]
     Dosage: 5 MEQ/KG
     Route: 042
     Dates: start: 20070802
  12. DOBUTREX [Concomitant]
     Dosage: 5.9 UG/KG, UNK
     Dates: start: 20070802
  13. SOLU-CORTEF [Concomitant]
     Indication: RESPIRATORY DISORDER
     Dosage: 100 MG, UNK
     Route: 042
     Dates: start: 20070802
  14. CLEXANE [Concomitant]
     Indication: COAGULOPATHY
     Dosage: 40 MG, QD
     Route: 058
     Dates: start: 20070805, end: 20070812
  15. ACTRAPID HM [Concomitant]
     Indication: HYPERGLYCAEMIA
     Dosage: 2-10 UNITS
     Route: 042
     Dates: start: 20070817

REACTIONS (6)
  - ANASTOMOTIC LEAK [None]
  - HYPERKALAEMIA [None]
  - INTRA-ABDOMINAL HAEMORRHAGE [None]
  - PNEUMOTHORAX [None]
  - RENAL FAILURE [None]
  - SEPSIS [None]
